FAERS Safety Report 18750961 (Version 1)
Quarter: 2021Q1

REPORT INFORMATION
  Report Type: Spontaneous
  Country: US (occurrence: US)
  Receive Date: 20210118
  Receipt Date: 20210118
  Transmission Date: 20210419
  Serious: No
  Sender: FDA-Public Use
  Company Number: US-CELGENEUS-USA-20210102208

PATIENT
  Sex: Male

DRUGS (5)
  1. REVLIMID [Suspect]
     Active Substance: LENALIDOMIDE
     Dosage: 25 MILLIGRAM
     Route: 048
     Dates: start: 201306
  2. REVLIMID [Suspect]
     Active Substance: LENALIDOMIDE
     Indication: PLASMA CELL MYELOMA
     Dosage: 25 MILLIGRAM
     Route: 048
     Dates: start: 201212
  3. REVLIMID [Suspect]
     Active Substance: LENALIDOMIDE
     Dosage: 25 ?15 MILLIGRAM
     Route: 048
     Dates: start: 201508
  4. REVLIMID [Suspect]
     Active Substance: LENALIDOMIDE
     Dosage: 10?15 MILLIGRAM
     Route: 048
     Dates: start: 201308
  5. REVLIMID [Suspect]
     Active Substance: LENALIDOMIDE
     Dosage: 15 MILLIGRAM
     Route: 048
     Dates: start: 20201215

REACTIONS (4)
  - Oral discomfort [Not Recovered/Not Resolved]
  - Dizziness [Not Recovered/Not Resolved]
  - Night sweats [Not Recovered/Not Resolved]
  - Headache [Not Recovered/Not Resolved]
